FAERS Safety Report 5668095-5 (Version None)
Quarter: 2008Q1

REPORT INFORMATION
  Report Type: 
  Country: None (occurrence: None)
  Receive Date: 20080313
  Receipt Date: 20080304
  Transmission Date: 20080703
  Serious: Yes (Other)
  Sender: FDA-Public Use
  Company Number: 2008005475

PATIENT
  Age: 12 Year
  Sex: Male
  Weight: 68.0396 kg

DRUGS (1)
  1. COOL MINT LISTERINE POCKETMIST (NO ACTIVE INGREDIENT) [Suspect]
     Dosage: OPHTHALMIC
     Route: 047
     Dates: start: 20080304

REACTIONS (4)
  - ACCIDENTAL EXPOSURE [None]
  - EYE IRRITATION [None]
  - EYE SWELLING [None]
  - VISION BLURRED [None]
